FAERS Safety Report 4396122-4 (Version None)
Quarter: 2004Q3

REPORT INFORMATION
  Report Type: 
  Country: None (occurrence: None)
  Receive Date: 20040709
  Receipt Date: 20040624
  Transmission Date: 20050211
  Serious: Yes (Death)
  Sender: FDA-Public Use
  Company Number: 199228

PATIENT
  Age: 49 Year
  Sex: Male

DRUGS (1)
  1. AVONEX [Suspect]
     Indication: MULTIPLE SCLEROSIS
     Dosage: 30 MCG QW IM
     Dates: end: 20040101

REACTIONS (3)
  - ARTERIOSCLEROSIS [None]
  - COMPLETED SUICIDE [None]
  - HYPERTENSIVE HEART DISEASE [None]
